FAERS Safety Report 7843957-9 (Version None)
Quarter: 2011Q4

REPORT INFORMATION
  Report Type: 
  Country: None (occurrence: None)
  Receive Date: 20111025
  Receipt Date: 20110909
  Transmission Date: 20120403
  Serious: Yes (Other)
  Sender: FDA-Public Use
  Company Number: PHHY2011GB78781

PATIENT
  Age: 31 Year
  Sex: Female
  Weight: 63.5 kg

DRUGS (3)
  1. PAROXETINE HCL [Suspect]
     Indication: DEPRESSION
     Route: 048
     Dates: start: 19990801
  2. DOMPERIDONE [Interacting]
  3. PAROXETINE HCL [Interacting]
     Dosage: 20 MG, TID
     Route: 048
     Dates: start: 19990101

REACTIONS (16)
  - RESTLESS LEGS SYNDROME [None]
  - DYSPNOEA [None]
  - FATIGUE [None]
  - NIGHTMARE [None]
  - MANIA [None]
  - FEELING JITTERY [None]
  - MUSCLE SPASMS [None]
  - HYPOTONIA [None]
  - TREMOR [None]
  - MALAISE [None]
  - NECK PAIN [None]
  - CONTUSION [None]
  - EPILEPSY [None]
  - ROAD TRAFFIC ACCIDENT [None]
  - BACK PAIN [None]
  - MATERNAL EXPOSURE DURING PREGNANCY [None]
